FAERS Safety Report 7954647-6 (Version None)
Quarter: 2011Q4

REPORT INFORMATION
  Report Type: 
  Country: None (occurrence: None)
  Receive Date: 20111202
  Receipt Date: 20111128
  Transmission Date: 20120403
  Serious: Yes (Death, Hospitalization, Other)
  Sender: FDA-Public Use
  Company Number: PHHY2011NL83689

PATIENT
  Sex: Female

DRUGS (4)
  1. ZOMETA [Suspect]
     Dosage: 4 MG/5ML ONCE PER 21 DAYS
     Dates: start: 20111013
  2. ZOMETA [Suspect]
     Indication: METASTASES TO BONE
     Dosage: 4 MG/5ML ONCE PER 21 DAYS
     Dates: start: 20110831
  3. ZOMETA [Suspect]
     Dosage: 4 MG/5ML ONCE PER 21 DAYS
     Dates: start: 20110921
  4. ZOMETA [Suspect]
     Dosage: 4 MG/5ML ONCE PER 21 DAYS
     Dates: start: 20111108

REACTIONS (9)
  - GASTRIC ULCER [None]
  - ABDOMINAL PAIN UPPER [None]
  - GENERAL PHYSICAL HEALTH DETERIORATION [None]
  - MALAISE [None]
  - LUNG CARCINOMA CELL TYPE UNSPECIFIED STAGE IV [None]
  - HAEMOGLOBIN DECREASED [None]
  - CHILLS [None]
  - INFECTIOUS PERITONITIS [None]
  - INTESTINAL PERFORATION [None]
